FAERS Safety Report 14342180 (Version 1)
Quarter: 2018Q1

REPORT INFORMATION
  Report Type: Spontaneous
  Country: US (occurrence: US)
  Receive Date: 20180102
  Receipt Date: 20180102
  Transmission Date: 20180509
  Serious: No
  Sender: FDA-Public Use
  Company Number: US-TEVA-810344ACC

PATIENT
  Sex: Female

DRUGS (2)
  1. DULOXETINE. [Suspect]
     Active Substance: DULOXETINE
     Indication: DEPRESSION
     Dates: start: 20170914
  2. DULOXETINE. [Suspect]
     Active Substance: DULOXETINE
     Dates: start: 201703

REACTIONS (2)
  - Urticaria [Unknown]
  - Rash [Unknown]
